FAERS Safety Report 5585376-4 (Version None)
Quarter: 2008Q1

REPORT INFORMATION
  Report Type: 
  Country: None (occurrence: None)
  Receive Date: 20080109
  Receipt Date: 20080104
  Transmission Date: 20080703
  Serious: Yes (Other)
  Sender: FDA-Public Use
  Company Number: GB-JNJFOC-20070905531

PATIENT
  Age: 40 Year
  Sex: Female

DRUGS (2)
  1. TOPAMAX [Suspect]
     Indication: DRUG USE FOR UNKNOWN INDICATION
     Route: 048
  2. EPILIM [Concomitant]
     Route: 065

REACTIONS (4)
  - ANXIETY [None]
  - DISTURBANCE IN SOCIAL BEHAVIOUR [None]
  - MOOD SWINGS [None]
  - VIOLENCE-RELATED SYMPTOM [None]
